FAERS Safety Report 6048570-4 (Version None)
Quarter: 2009Q1

REPORT INFORMATION
  Report Type: 
  Country: None (occurrence: None)
  Receive Date: 20090123
  Receipt Date: 20090120
  Transmission Date: 20090719
  Serious: Yes (Hospitalization)
  Sender: FDA-Public Use
  Company Number: JP-ASTRAZENECA-2009AP00658

PATIENT
  Sex: Female

DRUGS (2)
  1. NOLVADEX [Suspect]
     Indication: BREAST CANCER
     Route: 048
  2. LH-RH AGONIT [Concomitant]
     Indication: BREAST CANCER
     Route: 058

REACTIONS (1)
  - CEREBRAL INFARCTION [None]
